FAERS Safety Report 6961178-9 (Version None)
Quarter: 2010Q3

REPORT INFORMATION
  Report Type: 
  Country: None (occurrence: None)
  Receive Date: 20100901
  Receipt Date: 20100824
  Transmission Date: 20110219
  Serious: Yes (Death, Other)
  Sender: FDA-Public Use
  Company Number: JP-JNJFOC-20100808476

PATIENT
  Age: 73 Year
  Sex: Male

DRUGS (3)
  1. DUROTEP MT [Suspect]
     Indication: CANCER PAIN
     Route: 062
  2. VOLTAREN [Concomitant]
     Indication: CANCER PAIN
     Route: 065
  3. ANPEC [Concomitant]
     Indication: CANCER PAIN
     Route: 054

REACTIONS (3)
  - DRUG ERUPTION [None]
  - LUNG ADENOCARCINOMA [None]
  - PRURITUS [None]
